FAERS Safety Report 9034315 (Version 2)
Quarter: 2013Q1

REPORT INFORMATION
  Report Type: Spontaneous
  Country: US (occurrence: None)
  Receive Date: 20130115
  Receipt Date: 20130222
  Transmission Date: 20140127
  Serious: Yes (Hospitalization)
  Sender: FDA-Public Use
  Company Number: DSU-2013-00126

PATIENT
  Age: 77 Year
  Sex: Female
  Weight: 46.72 kg

DRUGS (4)
  1. BENICAR [Suspect]
     Indication: HYPERTENSION
     Dosage: 40 MG
     Route: 048
     Dates: start: 2011
  2. INDERAL )PROPRANOLOL) (PROPRANOLOL) [Concomitant]
  3. AMLODIPINE (AMLODIPINE) (5 MILLIGRAM) (AMLODIPINE) [Concomitant]
  4. HYDROCHLOROTHIAZIDE (HYDROCHLOROTHIAZIDE) (HYDROCHLOROTHIAZIDE) [Concomitant]

REACTIONS (5)
  - Dehydration [None]
  - Hypertension [None]
  - Headache [None]
  - Ear discomfort [None]
  - Viral infection [None]
